FAERS Safety Report 14616524 (Version 7)
Quarter: 2018Q2

REPORT INFORMATION
  Report Type: Spontaneous
  Country: FR (occurrence: FR)
  Receive Date: 20180309
  Receipt Date: 20180625
  Transmission Date: 20180711
  Serious: Yes (Hospitalization, Other)
  Sender: FDA-Public Use
  Company Number: FR-009507513-1803FRA001549

PATIENT
  Age: 30 Year
  Sex: Female
  Weight: 110 kg

DRUGS (19)
  1. LEVOCETIRIZINE DIHYDROCHLORIDE. [Suspect]
     Active Substance: LEVOCETIRIZINE DIHYDROCHLORIDE
     Indication: RASH PRURITIC
     Dosage: 5 MG, UNK
     Route: 048
     Dates: start: 20171101, end: 20171101
  2. DAFALGAN CODEINE [Suspect]
     Active Substance: ACETAMINOPHEN\CODEINE PHOSPHATE
     Indication: PAIN
     Dosage: 3 MG, UNK
     Route: 042
     Dates: start: 20171031, end: 20171101
  3. BRIDION [Suspect]
     Active Substance: SUGAMMADEX
     Indication: NEUROMUSCULAR BLOCKADE REVERSAL
     Dosage: 200 MG, UNK
     Route: 042
     Dates: start: 20171031, end: 20171102
  4. GENTAMICIN SULFATE. [Suspect]
     Active Substance: GENTAMICIN SULFATE
     Indication: ANTIBIOTIC PROPHYLAXIS
     Dosage: 3.2 G, UNK
     Route: 042
     Dates: start: 20171101, end: 20171101
  5. DAFALGAN CODEINE [Suspect]
     Active Substance: ACETAMINOPHEN\CODEINE PHOSPHATE
     Indication: PROCEDURAL PAIN
     Dosage: 500 MG, UNK, 1 DAY
     Route: 042
     Dates: start: 20171101, end: 20171101
  6. DAFALGAN CODEINE [Suspect]
     Active Substance: ACETAMINOPHEN\CODEINE PHOSPHATE
     Indication: NEUROMUSCULAR BLOCKADE REVERSAL
     Dosage: 5 MG, UNK, 1 DAY
     Route: 048
     Dates: start: 20171101, end: 20171101
  7. DAFALGAN CODEINE [Suspect]
     Active Substance: ACETAMINOPHEN\CODEINE PHOSPHATE
     Dosage: UNK
     Route: 065
  8. LEXOMIL [Suspect]
     Active Substance: BROMAZEPAM
     Indication: ANXIETY
     Dosage: 3 MG, UNK
     Route: 048
     Dates: start: 20171101, end: 20171101
  9. LOVENOX [Suspect]
     Active Substance: ENOXAPARIN SODIUM
     Indication: THROMBOSIS PROPHYLAXIS
     Dosage: 8000 IU, QD
     Route: 042
     Dates: start: 20171031, end: 20171101
  10. ACETAMINOPHEN. [Suspect]
     Active Substance: ACETAMINOPHEN
     Indication: PROCEDURAL PAIN
     Dosage: 1 DOSAGE FORM (DF), 4 TIMES A DAY (QID)
     Route: 042
     Dates: start: 20171031, end: 20171101
  11. LEXOMIL [Suspect]
     Active Substance: BROMAZEPAM
     Indication: PRODUCT USED FOR UNKNOWN INDICATION
  12. DROPERIDOL. [Suspect]
     Active Substance: DROPERIDOL
     Indication: AGITATION
     Dosage: 1.25 MG, UNK
     Route: 042
     Dates: start: 20171031, end: 20171102
  13. DAFALGAN CODEINE [Suspect]
     Active Substance: ACETAMINOPHEN\CODEINE PHOSPHATE
     Indication: AGITATION
     Dosage: 1.25 MG, UNK
     Route: 042
     Dates: start: 20171031, end: 20171102
  14. MORPHINE SULFATE. [Suspect]
     Active Substance: MORPHINE SULFATE
     Indication: PROCEDURAL PAIN
     Dosage: 3 MG, Q10MIN
     Route: 042
     Dates: start: 20171031, end: 20171101
  15. POLARAMINE [Suspect]
     Active Substance: DEXCHLORPHENIRAMINE MALEATE
     Indication: RASH PRURITIC
     Dosage: 1 DF, QD
     Route: 042
     Dates: start: 20171102, end: 20171102
  16. DAFALGAN CODEINE [Suspect]
     Active Substance: ACETAMINOPHEN\CODEINE PHOSPHATE
     Indication: ANTIBIOTIC PROPHYLAXIS
     Dosage: 1 DF, QID
     Route: 048
     Dates: start: 20171101, end: 20171101
  17. DAFALGAN CODEINE [Suspect]
     Active Substance: ACETAMINOPHEN\CODEINE PHOSPHATE
     Indication: RASH PRURITIC
     Dosage: 200 MG, UNK
     Route: 042
  18. MORPHINE SULFATE. [Suspect]
     Active Substance: MORPHINE SULFATE
     Dosage: 3 MG, UNK
     Route: 065
     Dates: start: 20171031, end: 20171101
  19. METRONIDAZOLE. [Suspect]
     Active Substance: METRONIDAZOLE
     Indication: ANTIBIOTIC PROPHYLAXIS
     Dosage: 500 MG, UNK
     Route: 042
     Dates: start: 20171101, end: 20171101

REACTIONS (1)
  - Drug reaction with eosinophilia and systemic symptoms [Recovered/Resolved]

NARRATIVE: CASE EVENT DATE: 20171031
